FAERS Safety Report 6810091-6 (Version None)
Quarter: 2010Q2

REPORT INFORMATION
  Report Type: 
  Country: None (occurrence: None)
  Receive Date: 20100630
  Receipt Date: 20100625
  Transmission Date: 20101027
  Serious: Yes (Other)
  Sender: FDA-Public Use
  Company Number: CH-ROCHE-711619

PATIENT
  Age: 77 Year
  Sex: Female

DRUGS (2)
  1. BEVACIZUMAB [Suspect]
     Route: 042
     Dates: start: 20100324, end: 20100426
  2. TEMODAL [Concomitant]
     Dates: start: 20100324, end: 20100426

REACTIONS (1)
  - MALIGNANT NEOPLASM PROGRESSION [None]
